FAERS Safety Report 7638992-X (Version None)
Quarter: 2011Q3

REPORT INFORMATION
  Report Type: 
  Country: None (occurrence: None)
  Receive Date: 20110727
  Receipt Date: 20110725
  Transmission Date: 20111222
  Serious: No
  Sender: FDA-Public Use
  Company Number: US-PFIZER INC-2011169349

PATIENT
  Sex: Female
  Weight: 73.923 kg

DRUGS (6)
  1. EFFEXOR XR [Suspect]
     Dosage: 75 MG, 2X/DAY
  2. CRESTOR [Concomitant]
     Dosage: UNK
  3. VICODIN [Concomitant]
     Indication: BACK DISORDER
     Dosage: UNK
  4. TRAZODONE [Concomitant]
     Indication: SLEEP DISORDER
     Dosage: UNK
  5. EFFEXOR XR [Suspect]
     Indication: DEPRESSION
     Dosage: 225 MG, DAILY
  6. EFFEXOR XR [Suspect]
     Dosage: 175 MG, DAILY

REACTIONS (5)
  - BLOOD CHOLESTEROL INCREASED [None]
  - DISTRACTIBILITY [None]
  - IRRITABILITY [None]
  - INSOMNIA [None]
  - ANGER [None]
